FAERS Safety Report 9024268 (Version 1)
Quarter: 2013Q1

REPORT INFORMATION
  Report Type: Spontaneous
  Country: AU (occurrence: AU)
  Receive Date: 20130121
  Receipt Date: 20130121
  Transmission Date: 20140127
  Serious: Yes (Hospitalization)
  Sender: FDA-Public Use
  Company Number: PHHY2012AU125056

PATIENT
  Age: 57 None
  Sex: Female

DRUGS (2)
  1. ACLASTA [Suspect]
     Dosage: 5 MG, UNK
     Route: 042
     Dates: start: 20111214
  2. CHEMOTHERAPEUTICS [Suspect]

REACTIONS (2)
  - Bone neoplasm [Unknown]
  - Procedural complication [Unknown]
